FAERS Safety Report 8984217 (Version 2)
Quarter: 2013Q1

REPORT INFORMATION
  Report Type: Report from Study
  Country: JP (occurrence: JP)
  Receive Date: 20121226
  Receipt Date: 20130222
  Transmission Date: 20140127
  Serious: Yes (Other)
  Sender: FDA-Public Use
  Company Number: PHHY2012JP119370

PATIENT
  Sex: Female

DRUGS (12)
  1. VALSARTAN, AMLODIPINE [Suspect]
     Indication: HYPERTENSION
     Dosage: 1 DF DAILY
     Route: 048
     Dates: start: 20110317
  2. STARSIS [Suspect]
     Dosage: 180 MG DAILY
     Route: 048
     Dates: start: 200304, end: 20110811
  3. BASEN [Suspect]
     Dosage: 0.4 MG DAILY
     Route: 048
     Dates: start: 200304, end: 20110811
  4. EQUA [Concomitant]
     Dosage: 50 MG, UNK
     Route: 048
     Dates: start: 20110812
  5. CARDENALIN [Concomitant]
     Indication: HYPERTENSION
     Dosage: 2 MG, UNK
     Route: 048
     Dates: start: 20030501
  6. SELOKEN [Concomitant]
     Indication: HYPERTENSION
     Dosage: 20 MG, UNK
     Route: 048
     Dates: start: 20051013
  7. MEVALOTIN [Concomitant]
     Dosage: 10 MG, UNK
     Route: 048
     Dates: start: 20030410
  8. ASPENON [Concomitant]
     Dosage: 40 MG, UNK
     Route: 048
     Dates: start: 20030501
  9. ASPARA POTASSIUM [Concomitant]
     Dosage: 600 MG, UNK
     Route: 048
     Dates: start: 200304
  10. MARZULENE-S [Concomitant]
     Dosage: 1.5 G, UNK
     Route: 048
     Dates: start: 200304
  11. SEVEN E.P [Concomitant]
     Dosage: 3 DF, UNK
     Route: 048
     Dates: start: 200304
  12. AMLODIPINE [Concomitant]
     Dosage: 5 MG, DAILY

REACTIONS (1)
  - Hypoglycaemia [Recovered/Resolved]
